FAERS Safety Report 20506323 (Version 3)
Quarter: 2022Q1

REPORT INFORMATION
  Report Type: Spontaneous
  Country: FR (occurrence: None)
  Receive Date: 20220223
  Receipt Date: 20220321
  Transmission Date: 20220423
  Serious: Yes (Life-Threatening, Other)
  Sender: FDA-Public Use
  Company Number: 2022A076990

PATIENT
  Age: 68 Year
  Sex: Female
  Weight: 70 kg

DRUGS (6)
  1. TICAGRELOR [Interacting]
     Active Substance: TICAGRELOR
     Indication: Myocardial infarction
     Route: 048
     Dates: start: 20220114, end: 20220114
  2. TIROFIBAN HYDROCHLORIDE [Interacting]
     Active Substance: TIROFIBAN HYDROCHLORIDE
     Indication: Myocardial infarction
     Route: 042
     Dates: start: 20220114, end: 20220114
  3. HEPARIN SODIUM [Interacting]
     Active Substance: HEPARIN SODIUM
     Indication: Myocardial infarction
     Route: 042
     Dates: start: 20220113
  4. LOVENOX [Interacting]
     Active Substance: ENOXAPARIN SODIUM
     Indication: Myocardial infarction
     Dosage: 35.0IU ONCE/SINGLE ADMINISTRATION
     Route: 042
     Dates: start: 20220113, end: 20220113
  5. ASPIRIN DL-LYSINE [Interacting]
     Active Substance: ASPIRIN DL-LYSINE
     Indication: Myocardial infarction
     Dosage: 250.0MG ONCE/SINGLE ADMINISTRATION
     Route: 042
     Dates: start: 20220113, end: 20220113
  6. TIROFIBAN [Interacting]
     Active Substance: TIROFIBAN
     Indication: Myocardial infarction

REACTIONS (3)
  - Shock haemorrhagic [Recovered/Resolved]
  - Cardiogenic shock [Recovered/Resolved]
  - Septic shock [Recovered/Resolved]

NARRATIVE: CASE EVENT DATE: 20220114
